FAERS Safety Report 5441548-0 (Version None)
Quarter: 2007Q3

REPORT INFORMATION
  Report Type: 
  Country: None (occurrence: None)
  Receive Date: 20070829
  Receipt Date: 20070829
  Transmission Date: 20080115
  Serious: No
  Sender: FDA-Public Use
  Company Number: None

PATIENT
  Age: 59 Year
  Sex: Female
  Weight: 69.5 kg

DRUGS (5)
  1. CYCLOSPORINE [Suspect]
     Indication: IMMUNOSUPPRESSION
     Dosage: 50 MG, PO QAM 25 MG, PO QPM APPROX 5 DAYS OF THERAPY SINCE TRANSPLANT
     Route: 048
  2. AMIODARONE [Concomitant]
  3. DAPSONE [Concomitant]
  4. ITRACONAZOLE [Concomitant]
  5. PREDNISONE [Concomitant]

REACTIONS (1)
  - TREMOR [None]
